FAERS Safety Report 11312744 (Version 1)
Quarter: 2015Q3

REPORT INFORMATION
  Report Type: Spontaneous
  Country: US (occurrence: US)
  Receive Date: 20150727
  Receipt Date: 20150727
  Transmission Date: 20151125
  Serious: No
  Sender: FDA-Public Use
  Company Number: US-ABBVIE-15P-163-1417523-00

PATIENT
  Sex: Female

DRUGS (1)
  1. SYNTHROID [Suspect]
     Active Substance: LEVOTHYROXINE SODIUM
     Indication: HYPOTHYROIDISM
     Route: 048

REACTIONS (10)
  - Lethargy [Not Recovered/Not Resolved]
  - Depression [Unknown]
  - Asthenia [Not Recovered/Not Resolved]
  - Binge eating [Unknown]
  - Narcolepsy [Not Recovered/Not Resolved]
  - Anxiety [Unknown]
  - Fear [Unknown]
  - Mood swings [Not Recovered/Not Resolved]
  - Memory impairment [Not Recovered/Not Resolved]
  - Feeling abnormal [Unknown]
